FAERS Safety Report 24898167 (Version 1)
Quarter: 2025Q1

REPORT INFORMATION
  Report Type: Report from Study
  Country: US (occurrence: US)
  Receive Date: 20250129
  Receipt Date: 20250129
  Transmission Date: 20250409
  Serious: Yes (Death, Other)
  Sender: ACADIA PHARMACEUTICALS
  Company Number: US-ACADIA PHARMACEUTICALS INC.-ACA-2025-PIM-000888

PATIENT
  Age: 88 Year
  Sex: Female

DRUGS (34)
  1. NUPLAZID [Suspect]
     Active Substance: PIMAVANSERIN TARTRATE
     Indication: Parkinson^s disease
     Dosage: 34 MILLIGRAM, QD
     Route: 048
     Dates: start: 20230403, end: 20250107
  2. NUPLAZID [Suspect]
     Active Substance: PIMAVANSERIN TARTRATE
     Indication: Hallucination
  3. NUPLAZID [Suspect]
     Active Substance: PIMAVANSERIN TARTRATE
     Indication: Delusion
  4. ACETAMINOPHEN [Concomitant]
     Active Substance: ACETAMINOPHEN
  5. AMOXICILLIN SODIUM [Concomitant]
     Active Substance: AMOXICILLIN SODIUM
  6. ASPIRIN [Concomitant]
     Active Substance: ASPIRIN
  7. ATORVASTATIN [Concomitant]
     Active Substance: ATORVASTATIN
  8. CEFACLOR [Concomitant]
     Active Substance: CEFACLOR
  9. CHOLECALCIFEROL [Concomitant]
     Active Substance: CHOLECALCIFEROL
  10. CLONAZEPAM [Concomitant]
     Active Substance: CLONAZEPAM
  11. CYANOCOBALAMIN [Concomitant]
     Active Substance: CYANOCOBALAMIN
  12. PROLIA [Concomitant]
     Active Substance: DENOSUMAB
  13. DICLOFENAC [Concomitant]
     Active Substance: DICLOFENAC
  14. DOCUSATE [Concomitant]
     Active Substance: DOCUSATE
  15. DULOXETINE [Concomitant]
     Active Substance: DULOXETINE
  16. ESTRADIOL [Concomitant]
     Active Substance: ESTRADIOL
  17. FAMOTIDINE [Concomitant]
     Active Substance: FAMOTIDINE
  18. FERROUS SULFATE [Concomitant]
     Active Substance: FERROUS SULFATE
  19. FLUCONAZOLE [Concomitant]
     Active Substance: FLUCONAZOLE
  20. FLONASE [Concomitant]
     Active Substance: FLUTICASONE PROPIONATE
  21. ISOSORBIDE MONONITRATE [Concomitant]
     Active Substance: ISOSORBIDE MONONITRATE
  22. LORAZEPAM [Concomitant]
     Active Substance: LORAZEPAM
  23. MELATONIN [Concomitant]
     Active Substance: MELATONIN
  24. MINERALS\VITAMINS [Concomitant]
     Active Substance: MINERALS\VITAMINS
  25. NITROFURANTOIN [Concomitant]
     Active Substance: NITROFURANTOIN
  26. NITROGLYCERIN [Concomitant]
     Active Substance: NITROGLYCERIN
  27. CARBOMER [Concomitant]
     Active Substance: CARBOMER
  28. PANTOPRAZOLE [Concomitant]
     Active Substance: PANTOPRAZOLE
  29. MIRALAX [Concomitant]
     Active Substance: POLYETHYLENE GLYCOL 3350
  30. QUETIAPINE [Concomitant]
     Active Substance: QUETIAPINE
  31. RIVASTIGMINE [Concomitant]
     Active Substance: RIVASTIGMINE
  32. TRAMADOL [Concomitant]
     Active Substance: TRAMADOL
  33. TRAZODONE [Concomitant]
     Active Substance: TRAZODONE HYDROCHLORIDE
  34. EPINEPHRINE [Concomitant]
     Active Substance: EPINEPHRINE

REACTIONS (1)
  - Death [Fatal]

NARRATIVE: CASE EVENT DATE: 20250107
